FAERS Safety Report 25030442 (Version 2)
Quarter: 2025Q2

REPORT INFORMATION
  Report Type: Report from Study
  Country: DE (occurrence: DE)
  Receive Date: 20250303
  Receipt Date: 20250407
  Transmission Date: 20250717
  Serious: Yes (Hospitalization)
  Sender: SPRINGWORKS THERAPEUTIC
  Company Number: DE-SPRINGWORKS THERAPEUTICS-SW-002407

PATIENT

DRUGS (4)
  1. NIROGACESTAT [Suspect]
     Active Substance: NIROGACESTAT
     Indication: Neoplasm
     Dosage: 150 MG BID (50 MG 3-0-3)
     Dates: start: 20250205, end: 20250205
  2. NIROGACESTAT [Suspect]
     Active Substance: NIROGACESTAT
     Dosage: 100 MG BID (50 MG 2-0-2)
     Dates: start: 20250206, end: 20250206
  3. NIROGACESTAT [Suspect]
     Active Substance: NIROGACESTAT
     Dosage: 50 MILLIGRAM, BID
     Dates: start: 20250207, end: 20250212
  4. NIROGACESTAT [Suspect]
     Active Substance: NIROGACESTAT
     Dosage: 50 MG BID (50 MG 1-0-1)
     Dates: start: 20250325

REACTIONS (2)
  - Rectal haemorrhage [Recovered/Resolved]
  - Nausea [Recovered/Resolved]

NARRATIVE: CASE EVENT DATE: 20250205
